FAERS Safety Report 15538260 (Version 1)
Quarter: 2018Q4

REPORT INFORMATION
  Report Type: Spontaneous
  Country: US (occurrence: US)
  Receive Date: 20181022
  Receipt Date: 20181022
  Transmission Date: 20190205
  Serious: No
  Sender: FDA-Public Use
  Company Number: US-SHIRE-US201840598

PATIENT

DRUGS (1)
  1. TAKHZYRO [Suspect]
     Active Substance: LANADELUMAB-FLYO
     Indication: PRODUCT USED FOR UNKNOWN INDICATION
     Dosage: UNK, 1X/2WKS
     Route: 058
     Dates: start: 20180925, end: 20181011

REACTIONS (4)
  - Hereditary angioedema [Unknown]
  - Condition aggravated [Unknown]
  - Fluid retention [Unknown]
  - Dizziness [Unknown]
